FAERS Safety Report 7139385-4 (Version None)
Quarter: 2010Q4

REPORT INFORMATION
  Report Type: 
  Country: None (occurrence: None)
  Receive Date: 20101206
  Receipt Date: 20101123
  Transmission Date: 20110411
  Serious: Yes (Death)
  Sender: FDA-Public Use
  Company Number: US-WATSON-2010-15333

PATIENT
  Age: 30 Year
  Sex: Female

DRUGS (2)
  1. LORAZEPAM [Suspect]
     Indication: SUICIDE ATTEMPT
     Dosage: UNK
  2. BROMISOVAL [Suspect]
     Indication: SUICIDE ATTEMPT
     Dosage: UNK

REACTIONS (1)
  - CARDIO-RESPIRATORY ARREST [None]
